FAERS Safety Report 8073193-5 (Version None)
Quarter: 2012Q1

REPORT INFORMATION
  Report Type: 
  Country: None (occurrence: None)
  Receive Date: 20120123
  Receipt Date: 20120123
  Transmission Date: 20120608
  Serious: No
  Sender: FDA-Public Use
  Company Number: None

PATIENT
  Age: 68 Year
  Sex: Male
  Weight: 135.9 kg

DRUGS (1)
  1. SIMVASTATIN [Suspect]
     Dosage: 20 MG EVERY DAY PO
     Route: 048
     Dates: start: 20101210, end: 20110815

REACTIONS (9)
  - BLOOD CREATININE INCREASED [None]
  - PANIC REACTION [None]
  - BLOOD GLUCOSE INCREASED [None]
  - BLOOD BILIRUBIN INCREASED [None]
  - BLOOD MAGNESIUM INCREASED [None]
  - ASPARTATE AMINOTRANSFERASE INCREASED [None]
  - DYSPNOEA [None]
  - BLOOD CREATINE PHOSPHOKINASE INCREASED [None]
  - FLUID RETENTION [None]
